FAERS Safety Report 16524068 (Version 2)
Quarter: 2019Q4

REPORT INFORMATION
  Report Type: Spontaneous
  Country: JP (occurrence: JP)
  Receive Date: 20190703
  Receipt Date: 20191001
  Transmission Date: 20200122
  Serious: Yes (Death, Hospitalization, Other)
  Sender: FDA-Public Use
  Company Number: JP-BRISTOL-MYERS SQUIBB COMPANY-BMS-2019-031048

PATIENT
  Age: 79 Year
  Sex: Male
  Weight: 54 kg

DRUGS (8)
  1. OPDIVO [Suspect]
     Active Substance: NIVOLUMAB
     Indication: NON-SMALL CELL LUNG CANCER RECURRENT
     Dosage: 240 MILLIGRAM
     Route: 041
     Dates: start: 20190219, end: 20190219
  2. SENNOSIDE A+B CALCIUM [Concomitant]
     Active Substance: SENNOSIDES A AND B
     Indication: CONSTIPATION
     Dosage: 24 MILLIGRAM, QD
     Route: 048
     Dates: start: 20180621
  3. AMITIZA [Concomitant]
     Active Substance: LUBIPROSTONE
     Indication: CONSTIPATION
     Dosage: 24 MICROGRAM, QD
     Route: 048
     Dates: start: 20180621
  4. TAMSULOSIN HYDROCHLORIDE. [Concomitant]
     Active Substance: TAMSULOSIN HYDROCHLORIDE
     Indication: BENIGN PROSTATIC HYPERPLASIA
     Dosage: 0.2 MILLIGRAM, QD
     Route: 048
     Dates: start: 20190115
  5. UNIPHYL [Concomitant]
     Active Substance: THEOPHYLLINE ANHYDROUS
     Indication: CHRONIC OBSTRUCTIVE PULMONARY DISEASE
     Dosage: 200 MILLIGRAM, QD
     Route: 048
     Dates: start: 20190205
  6. NAIXAN [NAPROXEN] [Concomitant]
     Active Substance: NAPROXEN
     Indication: TUMOUR ASSOCIATED FEVER
     Dosage: 100 MILLIGRAM, Q8H
     Route: 048
     Dates: start: 20190219
  7. TAKECAB [Concomitant]
     Active Substance: VONOPRAZAN FUMURATE
     Indication: GASTRIC ULCER
     Dosage: 20 MILLIGRAM
     Route: 048
     Dates: start: 20180601
  8. MAGMITT [Concomitant]
     Active Substance: MAGNESIUM OXIDE
     Indication: CONSTIPATION
     Dosage: 500 MILLIGRAM, Q8H
     Route: 048
     Dates: start: 20190221

REACTIONS (3)
  - Pneumonitis [Recovering/Resolving]
  - Malignant neoplasm progression [Fatal]
  - Respiratory failure [Unknown]

NARRATIVE: CASE EVENT DATE: 20190303
